FAERS Safety Report 6560783-1 (Version None)
Quarter: 2010Q1

REPORT INFORMATION
  Report Type: 
  Country: None (occurrence: None)
  Receive Date: 20100129
  Receipt Date: 20090928
  Transmission Date: 20100710
  Serious: No
  Sender: FDA-Public Use
  Company Number: US-ABBOTT-09P-163-0599665-00

PATIENT
  Sex: Male
  Weight: 101.7 kg

DRUGS (5)
  1. HUMIRA [Suspect]
     Indication: RHEUMATOID ARTHRITIS
  2. HUMIRA [Suspect]
     Dosage: RESTARTED
  3. NORVASC [Concomitant]
     Indication: DRUG USE FOR UNKNOWN INDICATION
  4. HYZAAR [Concomitant]
     Indication: DRUG USE FOR UNKNOWN INDICATION
  5. INDERAL [Concomitant]
     Indication: DRUG USE FOR UNKNOWN INDICATION

REACTIONS (1)
  - MUSCLE TWITCHING [None]
